FAERS Safety Report 7226414-2 (Version None)
Quarter: 2011Q1

REPORT INFORMATION
  Report Type: 
  Country: None (occurrence: None)
  Receive Date: 20110110
  Receipt Date: 20110110
  Transmission Date: 20110831
  Serious: Yes (Disabling)
  Sender: FDA-Public Use
  Company Number: None

PATIENT
  Sex: Male
  Weight: 12.1 kg

DRUGS (1)
  1. EPIPEN JR. [Suspect]
     Indication: ANAPHYLACTIC REACTION
     Dosage: 0.15 MG 1 TIME IM
     Route: 030
     Dates: start: 20110101

REACTIONS (3)
  - NEEDLE ISSUE [None]
  - INJECTION SITE HAEMATOMA [None]
  - DEVICE MALFUNCTION [None]
